FAERS Safety Report 6293640-9 (Version None)
Quarter: 2009Q3

REPORT INFORMATION
  Report Type: 
  Country: None (occurrence: None)
  Receive Date: 20090730
  Receipt Date: 20090715
  Transmission Date: 20100115
  Serious: Yes (Death)
  Sender: FDA-Public Use
  Company Number: AE 2009-085

PATIENT
  Age: 51 Year
  Sex: Male

DRUGS (4)
  1. FAZACLO ODT [Suspect]
     Dosage: 200 MG QHS PO
     Route: 048
     Dates: start: 20081217, end: 20090624
  2. ACETAMINOPHEN [Concomitant]
  3. MILK OF MAGNESIA TAB [Concomitant]
  4. PROPRANOLOL [Concomitant]

REACTIONS (1)
  - DEATH [None]
